FAERS Safety Report 8198426-6 (Version None)
Quarter: 2012Q1

REPORT INFORMATION
  Report Type: 
  Country: None (occurrence: None)
  Receive Date: 20120309
  Receipt Date: 20120302
  Transmission Date: 20120608
  Serious: Yes (Other)
  Sender: FDA-Public Use
  Company Number: PHHY2012US018509

PATIENT
  Age: 79 Year
  Sex: Female

DRUGS (2)
  1. ANASTROZOLE [Suspect]
     Dosage: UNK UKN, UNK
  2. TRIAMTERENE [Interacting]
     Dosage: UNK UKN, UNK

REACTIONS (5)
  - PAPULE [None]
  - RASH PRURITIC [None]
  - DRUG INTERACTION [None]
  - TRANSIENT ACANTHOLYTIC DERMATOSIS [None]
  - SKIN EXFOLIATION [None]
